FAERS Safety Report 22102844 (Version 3)
Quarter: 2023Q2

REPORT INFORMATION
  Report Type: Spontaneous
  Country: JP (occurrence: JP)
  Receive Date: 20230316
  Receipt Date: 20230417
  Transmission Date: 20230721
  Serious: Yes (Death)
  Sender: FDA-Public Use
  Company Number: JP-ELI_LILLY_AND_COMPANY-JP202303006824

PATIENT
  Age: 68 Year
  Sex: Male
  Weight: 53.8 kg

DRUGS (5)
  1. CYRAMZA [Suspect]
     Active Substance: RAMUCIRUMAB
     Indication: Gastric cancer recurrent
     Dosage: 375 MG, / 2WEEKS
     Route: 041
     Dates: start: 20221024, end: 20221128
  2. PACLITAXEL [Suspect]
     Active Substance: PACLITAXEL
     Indication: Gastric cancer recurrent
     Dosage: 100 MG, / 2WEEKS
     Route: 041
     Dates: start: 20221024, end: 20221128
  3. URSODIOL [Concomitant]
     Active Substance: URSODIOL
     Dosage: UNK
     Route: 048
     Dates: start: 20211109, end: 202211
  4. AMMONIUM GLYCYRRHIZATE [Concomitant]
     Active Substance: AMMONIUM GLYCYRRHIZATE
     Dosage: UNK
     Route: 048
     Dates: start: 20210927, end: 202211
  5. EFINACONAZOLE [Concomitant]
     Active Substance: EFINACONAZOLE

REACTIONS (4)
  - Hepatic artery aneurysm [Fatal]
  - Aneurysm ruptured [Fatal]
  - Gastrointestinal perforation [Fatal]
  - Hepatic function abnormal [Unknown]

NARRATIVE: CASE EVENT DATE: 20220101
